FAERS Safety Report 20656203 (Version 2)
Quarter: 2022Q3

REPORT INFORMATION
  Report Type: Spontaneous
  Country: US (occurrence: US)
  Receive Date: 20220331
  Receipt Date: 20220721
  Transmission Date: 20221026
  Serious: Yes (Death, Other)
  Sender: FDA-Public Use
  Company Number: US-TEVA-2022-US-2022486

PATIENT
  Age: 64 Year
  Sex: Female
  Weight: 43.54 kg

DRUGS (11)
  1. AMLODIPINE\VALSARTAN [Suspect]
     Active Substance: AMLODIPINE\VALSARTAN
     Indication: Hypertension
     Dosage: 10/320 MG
     Route: 048
     Dates: start: 20150601, end: 20160705
  2. VALSARTAN [Suspect]
     Active Substance: VALSARTAN
     Indication: Hypertension
     Route: 048
     Dates: start: 20160620, end: 20180621
  3. ACETAMINOPHEN\HYDROCODONE [Concomitant]
     Active Substance: ACETAMINOPHEN\HYDROCODONE
     Indication: Pain management
     Dosage: 10/320 MG AS NEEDED
     Route: 048
     Dates: start: 2010, end: 2016
  4. JANUVIA [Concomitant]
     Active Substance: SITAGLIPTIN PHOSPHATE
     Indication: Diabetes mellitus
     Dosage: 50MG DAILY
     Route: 048
     Dates: start: 2016, end: 2019
  5. ATORVASTATIN [Concomitant]
     Active Substance: ATORVASTATIN
     Indication: Blood cholesterol increased
     Dosage: 40MG DAILY
     Route: 048
     Dates: start: 2015, end: 2022
  6. CLONIDINE [Concomitant]
     Active Substance: CLONIDINE
     Indication: Hypertension
     Dosage: 0.2 MG DAILY
     Route: 048
     Dates: start: 2015, end: 2019
  7. DULOXETINE [Concomitant]
     Active Substance: DULOXETINE
     Indication: Pain management
     Dosage: 30 MG
     Dates: start: 2016, end: 2017
  8. AMLODIPINE BESYLATE [Concomitant]
     Active Substance: AMLODIPINE BESYLATE
     Indication: Hypertension
     Dosage: 5MG-10MG DAILY
     Route: 048
     Dates: start: 2015, end: 2022
  9. PROPRANOLOL [Concomitant]
     Active Substance: PROPRANOLOL HYDROCHLORIDE
     Indication: Hypertension
     Dosage: 20MG DAILY
     Route: 048
     Dates: start: 2019, end: 2019
  10. LOSARTAN [Concomitant]
     Active Substance: LOSARTAN
     Indication: Hypertension
     Dosage: 50MG DAILY
     Route: 048
     Dates: start: 2019, end: 2022
  11. METFORMIN [Concomitant]
     Active Substance: METFORMIN HYDROCHLORIDE
     Indication: Diabetes mellitus
     Dosage: 500 MG DAILY
     Route: 048
     Dates: start: 2019, end: 2022

REACTIONS (3)
  - Gastric cancer stage IV [Fatal]
  - Hepatic cancer metastatic [Unknown]
  - Small intestine adenocarcinoma [Unknown]
